FAERS Safety Report 20948173 (Version 2)
Quarter: 2022Q2

REPORT INFORMATION
  Report Type: Spontaneous
  Country: JP (occurrence: JP)
  Receive Date: 20220611
  Receipt Date: 20220621
  Transmission Date: 20220721
  Serious: Yes (Death, Other)
  Sender: FDA-Public Use
  Company Number: JP-AMGEN-JPNSP2021198587

PATIENT
  Sex: Male

DRUGS (2)
  1. BLINCYTO [Suspect]
     Active Substance: BLINATUMOMAB
     Indication: B precursor type acute leukaemia
     Dosage: 9 MICROGRAM, QD
     Route: 041
     Dates: start: 20211101, end: 2021
  2. BLINCYTO [Suspect]
     Active Substance: BLINATUMOMAB
     Dosage: 28 MICROGRAM, QD
     Route: 041

REACTIONS (6)
  - Acute lymphocytic leukaemia recurrent [Fatal]
  - Bacterial diarrhoea [Recovering/Resolving]
  - Optic neuritis [Not Recovered/Not Resolved]
  - Pyrexia [Recovered/Resolved]
  - White blood cell count decreased [Recovering/Resolving]
  - Platelet count decreased [Recovering/Resolving]

NARRATIVE: CASE EVENT DATE: 20211102
